FAERS Safety Report 12584537 (Version 3)
Quarter: 2017Q1

REPORT INFORMATION
  Report Type: Spontaneous
  Country: US (occurrence: US)
  Receive Date: 20160722
  Receipt Date: 20170203
  Transmission Date: 20170428
  Serious: No
  Sender: FDA-Public Use
  Company Number: US-LUNDBECK-DKLU2016327

PATIENT
  Age: 65 Year
  Sex: Female
  Weight: 87 kg

DRUGS (3)
  1. NORTHERA [Suspect]
     Active Substance: DROXIDOPA
     Indication: CEREBELLAR ATAXIA
     Dosage: SCHEDULE B TITRATION
     Route: 048
  2. NORTHERA [Suspect]
     Active Substance: DROXIDOPA
     Indication: AUTONOMIC NERVOUS SYSTEM IMBALANCE
  3. NORTHERA [Suspect]
     Active Substance: DROXIDOPA
     Indication: DIZZINESS
     Dosage: SCHEDULE B TITRATION
     Route: 065
     Dates: start: 20160707

REACTIONS (4)
  - Mobility decreased [Recovered/Resolved]
  - Nervousness [Recovered/Resolved]
  - Restlessness [Recovered/Resolved]
  - Confusional state [Recovered/Resolved]

NARRATIVE: CASE EVENT DATE: 20160708
